FAERS Safety Report 12260469 (Version 1)
Quarter: 2016Q2

REPORT INFORMATION
  Report Type: Spontaneous
  Country: GB (occurrence: GB)
  Receive Date: 20160412
  Receipt Date: 20160412
  Transmission Date: 20160815
  Serious: Yes (Life-Threatening)
  Sender: FDA-Public Use
  Company Number: GB-WATSON-2016-06936

PATIENT
  Age: 81 Year
  Sex: Male

DRUGS (2)
  1. RIVASTIGMINE (UNKNOWN) [Suspect]
     Active Substance: RIVASTIGMINE
     Indication: PARKINSON^S DISEASE
     Dosage: 10.5 MG, DAILY (4.5MG IN THE MORNING AND 6MG AT NIGHT)
     Route: 048
     Dates: end: 20160318
  2. CO-CARELDOPA [Concomitant]
     Active Substance: CARBIDOPA\LEVODOPA
     Indication: PRODUCT USED FOR UNKNOWN INDICATION
     Dosage: UNK
     Route: 065

REACTIONS (2)
  - Bradyarrhythmia [Recovered/Resolved]
  - Sinus bradycardia [Unknown]

NARRATIVE: CASE EVENT DATE: 20160316
